FAERS Safety Report 13014494 (Version 1)
Quarter: 2016Q4

REPORT INFORMATION
  Report Type: Spontaneous
  Country: US (occurrence: US)
  Receive Date: 20161209
  Receipt Date: 20161209
  Transmission Date: 20170207
  Serious: Yes (Other)
  Sender: FDA-Public Use
  Company Number: US-SUNOVION-2016SUN002932

PATIENT
  Age: 58 Year
  Sex: Female

DRUGS (19)
  1. GABAPENTIN. [Concomitant]
     Active Substance: GABAPENTIN
     Dosage: 300 MG, TID
     Route: 048
  2. VITAMIN E [Concomitant]
     Active Substance: .ALPHA.-TOCOPHEROL
     Dosage: 400 IU, QD
     Route: 048
  3. BENZTROPINE [Suspect]
     Active Substance: BENZTROPINE
     Indication: TARDIVE DYSKINESIA
  4. LATUDA [Suspect]
     Active Substance: LURASIDONE HYDROCHLORIDE
     Dosage: 40 MG, UNK
     Route: 048
  5. LATUDA [Suspect]
     Active Substance: LURASIDONE HYDROCHLORIDE
     Dosage: 120 MG, UNK
     Route: 048
     Dates: start: 20160426
  6. KLONOPIN [Concomitant]
     Active Substance: CLONAZEPAM
     Dosage: 1 MG, BID
     Route: 048
     Dates: start: 20140203
  7. VYVANSE [Concomitant]
     Active Substance: LISDEXAMFETAMINE DIMESYLATE
     Dosage: 50 MG, QD
     Dates: start: 20140310
  8. CHOLECALCIFEROL [Concomitant]
     Active Substance: CHOLECALCIFEROL
     Dosage: 1000 IU, QD
     Route: 048
  9. LATUDA [Suspect]
     Active Substance: LURASIDONE HYDROCHLORIDE
     Indication: AFFECTIVE DISORDER
     Dosage: 20 MG, UNK
     Route: 048
     Dates: start: 201510
  10. BENZTROPINE [Suspect]
     Active Substance: BENZTROPINE
     Indication: DYSKINESIA
  11. ATORVASTATIN CALCIUM. [Concomitant]
     Active Substance: ATORVASTATIN CALCIUM
     Dosage: 20 MG, QD
     Route: 048
  12. BENZTROPINE [Suspect]
     Active Substance: BENZTROPINE
     Indication: TONGUE DISORDER
  13. TRAZODONE [Concomitant]
     Active Substance: TRAZODONE HYDROCHLORIDE
     Dosage: 100 MG, HS
     Route: 048
     Dates: start: 20150126
  14. METFORMIN [Concomitant]
     Active Substance: METFORMIN HYDROCHLORIDE
     Dosage: 500 MG, BID
     Route: 048
  15. LATUDA [Suspect]
     Active Substance: LURASIDONE HYDROCHLORIDE
     Dosage: 60 MG, UNK
     Route: 048
  16. LATUDA [Suspect]
     Active Substance: LURASIDONE HYDROCHLORIDE
     Dosage: 80 MG, UNK
     Route: 048
  17. BENZTROPINE [Suspect]
     Active Substance: BENZTROPINE
     Indication: EXTRAPYRAMIDAL DISORDER
     Dosage: 1 MG, BID
     Route: 048
  18. HABITROL [Concomitant]
     Active Substance: NICOTINE
  19. OMEPRAZOLE. [Concomitant]
     Active Substance: OMEPRAZOLE
     Dosage: 20 MG, QD
     Route: 048

REACTIONS (15)
  - Dry mouth [Recovering/Resolving]
  - Extrapyramidal disorder [Recovering/Resolving]
  - Tardive dyskinesia [Recovering/Resolving]
  - Tongue disorder [Recovering/Resolving]
  - Suicidal ideation [Recovering/Resolving]
  - Drooling [Recovering/Resolving]
  - Fear [Recovering/Resolving]
  - Feeling abnormal [Recovering/Resolving]
  - Dyskinesia [Recovering/Resolving]
  - Confusional state [Recovering/Resolving]
  - Off label use [Unknown]
  - Akathisia [Recovering/Resolving]
  - Morbid thoughts [Recovering/Resolving]
  - Swollen tongue [Recovering/Resolving]
  - Anxiety [Recovering/Resolving]

NARRATIVE: CASE EVENT DATE: 201605
